FAERS Safety Report 14450014 (Version 3)
Quarter: 2018Q1

REPORT INFORMATION
  Report Type: Report from Study
  Country: US (occurrence: US)
  Receive Date: 20180129
  Receipt Date: 20180312
  Transmission Date: 20180509
  Serious: Yes (Hospitalization, Other)
  Sender: FDA-Public Use
  Company Number: US-AMGEN-USASL2018009849

PATIENT
  Age: 61 Year
  Sex: Female

DRUGS (2)
  1. REPATHA [Suspect]
     Active Substance: EVOLOCUMAB
     Indication: BLOOD CHOLESTEROL INCREASED
     Dosage: 140 MG, Q2WK
     Route: 065
  2. REPATHA [Suspect]
     Active Substance: EVOLOCUMAB
     Indication: HYPERCHOLESTEROLAEMIA

REACTIONS (8)
  - Loss of consciousness [Unknown]
  - Pneumonia [Unknown]
  - Hypertensive emergency [Unknown]
  - Plasma cell myeloma [Unknown]
  - Renal failure [Unknown]
  - Diabetic ketoacidosis [Unknown]
  - Seizure [Unknown]
  - Rotator cuff syndrome [Unknown]
